FAERS Safety Report 6742873-3 (Version None)
Quarter: 2010Q2

REPORT INFORMATION
  Report Type: 
  Country: None (occurrence: None)
  Receive Date: 20100527
  Receipt Date: 20100512
  Transmission Date: 20101027
  Serious: Yes (Other)
  Sender: FDA-Public Use
  Company Number: DE-RANBAXY-2010RR-33848

PATIENT
  Age: 60 Year
  Sex: Male
  Weight: 71 kg

DRUGS (20)
  1. CLARITHROMYCIN [Suspect]
     Dosage: 2 DF, QD
     Route: 048
     Dates: start: 20070727, end: 20070802
  2. CEFTRIAXONE SODIUM [Suspect]
     Dosage: 2000 MG, QD
     Route: 042
     Dates: start: 20070728, end: 20070802
  3. HEPATODORON [Concomitant]
     Dosage: 4 DF, QD
     Route: 048
     Dates: start: 20070725, end: 20070727
  4. HEPATODORON [Concomitant]
     Dosage: 6 GTT, QD
     Route: 048
     Dates: start: 20070728
  5. NEURO-AS [Concomitant]
     Dosage: 3 DF, UNK
     Dates: start: 20070730, end: 20070810
  6. NEURO-B FORTE BIOMO INJEKT [Concomitant]
     Dosage: 1 DF, QD
     Route: 042
     Dates: start: 20070725, end: 20070726
  7. PHOSPHORUS D8 [Concomitant]
     Dosage: 1 DF, QD
     Route: 058
     Dates: start: 20070726, end: 20070726
  8. CLEXANE MULTIDOSE 100MG/ML [Concomitant]
     Dosage: 0.4 ML, QD
     Route: 058
     Dates: start: 20070727, end: 20070808
  9. KALINOR RETARD [Concomitant]
     Dosage: 2 DF, QD
     Route: 048
     Dates: start: 20070731, end: 20070808
  10. METOPROLOL 100 1A PHARMA [Concomitant]
     Dosage: 1 DF, QD
     Route: 048
     Dates: end: 20070726
  11. METOPROLOL 100 1A PHARMA [Concomitant]
     Dosage: 0.5 DF, QD
     Route: 048
     Dates: start: 20070726
  12. CARBAMAZEPIN 200 HEUMANN [Concomitant]
     Dosage: 4 DF, QD
     Route: 048
     Dates: start: 20070725, end: 20070728
  13. CARBAMAZEPIN 200 HEUMANN [Concomitant]
     Dosage: 3 DF, QD
     Route: 048
     Dates: start: 20070729, end: 20070730
  14. CARBAMAZEPINE [Concomitant]
     Dosage: 2 DF, QD
     Route: 048
     Dates: start: 20070731, end: 20070806
  15. CIPROFLOXACIN ABZ 500MG FILMTABLETTEN [Concomitant]
     Dosage: 2 DF, QD
     Route: 048
     Dates: start: 20070726, end: 20070727
  16. MINIUM D6 [Concomitant]
     Dosage: 1 DF, QD
     Route: 048
     Dates: start: 20070728, end: 20070810
  17. BRYOPHYLLUM 50% [Concomitant]
     Dosage: 3 DF, QD
     Route: 048
     Dates: start: 20070728, end: 20070810
  18. ARGENTUM D20 [Concomitant]
     Dosage: 1 DF, QD
     Route: 058
     Dates: start: 20070725, end: 20070726
  19. BRYOPHYLLUM D5 CON D7 [Concomitant]
     Dosage: 4 DF, QD
     Route: 040
     Dates: start: 20070727, end: 20070727
  20. STIBIUM D6 [Concomitant]
     Dosage: 4 DF, QD
     Route: 042
     Dates: start: 20070725, end: 20070727

REACTIONS (3)
  - HYPERSENSITIVITY [None]
  - PYREXIA [None]
  - RASH MACULO-PAPULAR [None]
